FAERS Safety Report 15081247 (Version 1)
Quarter: 2018Q2

REPORT INFORMATION
  Report Type: Spontaneous
  Country: US (occurrence: US)
  Receive Date: 20180628
  Receipt Date: 20180628
  Transmission Date: 20180711
  Serious: No
  Sender: FDA-Public Use
  Company Number: US-ACCORD-063161

PATIENT
  Age: 57 Year
  Sex: Female

DRUGS (1)
  1. CLONAZEPAM ACCORD [Suspect]
     Active Substance: CLONAZEPAM
     Indication: PRODUCT USED FOR UNKNOWN INDICATION
     Dosage: STRENGTH: 1 MG?1 TABLET IN THE MORNING
     Route: 048
     Dates: start: 201707, end: 20180122

REACTIONS (2)
  - Hypoacusis [Unknown]
  - Tinnitus [Unknown]
